FAERS Safety Report 16773170 (Version 1)
Quarter: 2019Q3

REPORT INFORMATION
  Report Type: Spontaneous
  Country: US (occurrence: US)
  Receive Date: 20190904
  Receipt Date: 20190904
  Transmission Date: 20191005
  Serious: Yes (Other)
  Sender: FDA-Public Use
  Company Number: US-INDIVIOR LIMITED-INDV-121319-2019

PATIENT
  Sex: Male

DRUGS (1)
  1. PERSERIS [Suspect]
     Active Substance: RISPERIDONE
     Indication: SCHIZOPHRENIA
     Dosage: 120 MILLIGRAM, QMO
     Route: 058
     Dates: start: 20190616, end: 20190821

REACTIONS (8)
  - Speech disorder [Unknown]
  - Delusion [Unknown]
  - Euphoric mood [Unknown]
  - Visual impairment [Unknown]
  - Dizziness [Unknown]
  - Panic attack [Unknown]
  - Hallucination [Unknown]
  - Therapeutic product effect incomplete [Recovered/Resolved]

NARRATIVE: CASE EVENT DATE: 20190624
